FAERS Safety Report 24973413 (Version 2)
Quarter: 2025Q2

REPORT INFORMATION
  Report Type: Report from Study
  Country: US (occurrence: US)
  Receive Date: 20250216
  Receipt Date: 20250608
  Transmission Date: 20250717
  Serious: Yes (Hospitalization, Other)
  Sender: ABBVIE
  Company Number: US-ABBVIE-6134473

PATIENT
  Sex: Female

DRUGS (1)
  1. LINZESS [Suspect]
     Active Substance: LINACLOTIDE
     Indication: Product used for unknown indication
     Route: 048

REACTIONS (4)
  - Intestinal obstruction [Unknown]
  - Large intestinal haemorrhage [Recovering/Resolving]
  - Intestinal dilatation [Unknown]
  - Haemorrhoidal haemorrhage [Unknown]
